FAERS Safety Report 8258565-8 (Version None)
Quarter: 2012Q2

REPORT INFORMATION
  Report Type: 
  Country: None (occurrence: None)
  Receive Date: 20120404
  Receipt Date: 20120329
  Transmission Date: 20120825
  Serious: Yes (Death)
  Sender: FDA-Public Use
  Company Number: US-ASTELLAS-2012US003293

PATIENT
  Sex: Male

DRUGS (1)
  1. TARCEVA [Suspect]
     Indication: MALIGNANT NEOPLASM OF RENAL PELVIS
     Dosage: 150 MG, UID/QD
     Route: 048

REACTIONS (2)
  - OFF LABEL USE [None]
  - DEATH [None]
